FAERS Safety Report 9200083 (Version 3)
Quarter: 2013Q3

REPORT INFORMATION
  Report Type: Spontaneous
  Country: US (occurrence: US)
  Receive Date: 20130329
  Receipt Date: 20130719
  Transmission Date: 20140515
  Serious: Yes (Hospitalization, Other)
  Sender: FDA-Public Use
  Company Number: US-TARO-2013P1003633

PATIENT
  Age: 13 Year
  Sex: 0
  Weight: 38.56 kg

DRUGS (1)
  1. ADAPALENE AND BENZOYL PEROXIDE [Suspect]
     Indication: ACNE
     Route: 061
     Dates: start: 20121218

REACTIONS (1)
  - Appendicitis [Recovered/Resolved]
